FAERS Safety Report 10101495 (Version 2)
Quarter: 2020Q2

REPORT INFORMATION
  Report Type: Spontaneous
  Country: GB (occurrence: GB)
  Receive Date: 20140424
  Receipt Date: 20200430
  Transmission Date: 20200713
  Serious: Yes (Hospitalization, Other)
  Sender: FDA-Public Use
  Company Number: GB-PERRIGO-14GB004154

PATIENT
  Age: 27 Year
  Sex: Female
  Weight: 56 kg

DRUGS (2)
  1. PARACETAMOL [Suspect]
     Active Substance: ACETAMINOPHEN
     Indication: INTENTIONAL OVERDOSE
     Dosage: 11 G
     Route: 048
  2. PARACETAMOL 16028/0012 500 MG [Suspect]
     Active Substance: ACETAMINOPHEN
     Indication: OVERDOSE
     Dosage: 11 G, SINGLE
     Route: 065

REACTIONS (5)
  - Haemolysis [Recovered/Resolved]
  - Jaundice [Recovered/Resolved]
  - Intentional overdose [Recovering/Resolving]
  - Anaemia [Unknown]
  - Blood bilirubin increased [Recovering/Resolving]
